FAERS Safety Report 13231918 (Version 1)
Quarter: 2017Q1

REPORT INFORMATION
  Report Type: Spontaneous
  Country: US (occurrence: US)
  Receive Date: 20170214
  Receipt Date: 20170214
  Transmission Date: 20170428
  Serious: Yes (Other)
  Sender: FDA-Public Use
  Company Number: US-AMAG PHARMACEUTICALS, INC.-AMAG201602222

PATIENT

DRUGS (1)
  1. MAKENA [Suspect]
     Active Substance: HYDROXYPROGESTERONE CAPROATE
     Indication: OFF LABEL USE
     Dosage: 1 ML, WEEKLY
     Route: 030
     Dates: start: 20160824

REACTIONS (3)
  - Off label use [Unknown]
  - Cervical incompetence [Unknown]
  - Premature delivery [Unknown]
